FAERS Safety Report 16465826 (Version 2)
Quarter: 2019Q3

REPORT INFORMATION
  Report Type: Spontaneous
  Country: RU (occurrence: RU)
  Receive Date: 20190621
  Receipt Date: 20190703
  Transmission Date: 20191004
  Serious: Yes (Other)
  Sender: FDA-Public Use
  Company Number: PHHY2019RU140264

PATIENT
  Age: 64 Year
  Sex: Male

DRUGS (2)
  1. TASIGNA [Suspect]
     Active Substance: NILOTINIB
     Dosage: 400 MG, BID
     Route: 065
  2. TASIGNA [Suspect]
     Active Substance: NILOTINIB
     Indication: CHRONIC MYELOID LEUKAEMIA
     Dosage: 400 MG, QD
     Route: 065
     Dates: start: 201401

REACTIONS (5)
  - Drug ineffective [Unknown]
  - Respiratory tract infection [Unknown]
  - Viral infection [Unknown]
  - Blood count abnormal [Unknown]
  - Drug resistance [Unknown]

NARRATIVE: CASE EVENT DATE: 201508
